FAERS Safety Report 11109159 (Version 1)
Quarter: 2015Q2

REPORT INFORMATION
  Report Type: Spontaneous
  Country: US (occurrence: None)
  Receive Date: 20150511
  Receipt Date: 20150511
  Transmission Date: 20150821
  Serious: Yes (Other)
  Sender: FDA-Public Use
  Company Number: None

PATIENT
  Age: 64 Year
  Sex: Female
  Weight: 90.72 kg

DRUGS (9)
  1. COQ10 [Concomitant]
     Active Substance: UBIDECARENONE
  2. POTASSIUM [Concomitant]
     Active Substance: POTASSIUM
  3. PROPOFOL. [Suspect]
     Active Substance: PROPOFOL
     Indication: COLONOSCOPY
     Dosage: INTO A VEIN
     Route: 042
     Dates: start: 20150504, end: 20150504
  4. CALCIUM WITH D [Concomitant]
     Active Substance: CALCIUM\VITAMIN D
  5. BABY ASPIRIN [Concomitant]
     Active Substance: ASPIRIN
  6. PRESERVISION RED2 [Concomitant]
  7. C-PAP MACHINE METFORMIN [Concomitant]
  8. HCTZ [Concomitant]
     Active Substance: HYDROCHLOROTHIAZIDE
  9. LOSARTIN [Concomitant]
     Active Substance: LOSARTAN

REACTIONS (4)
  - Dizziness [None]
  - Delayed recovery from anaesthesia [None]
  - Amnesia [None]
  - Headache [None]

NARRATIVE: CASE EVENT DATE: 20150504
